FAERS Safety Report 9245041 (Version 1)
Quarter: 2013Q1

REPORT INFORMATION
  Report Type: Spontaneous
  Country: US (occurrence: None)
  Receive Date: 20121130
  Receipt Date: 20121130
  Transmission Date: 20140127
  Serious: Yes (Other)
  Sender: FDA-Public Use
  Company Number: 357536

PATIENT
  Age: 22 Year
  Sex: Male
  Weight: 61.2 kg

DRUGS (1)
  1. NOVOLOG [Suspect]
     Indication: TYPE 1 DIABETES MELLITUS
     Dosage: UNK, SUBCUTAN.-PUMP

REACTIONS (2)
  - Drug ineffective [None]
  - Blood glucose increased [None]
